FAERS Safety Report 8992153 (Version 14)
Quarter: 2014Q4

REPORT INFORMATION
  Report Type: Report from Study
  Country: CA (occurrence: CA)
  Receive Date: 20121231
  Receipt Date: 20141229
  Transmission Date: 20150529
  Serious: Yes (Death, Hospitalization, Other)
  Sender: FDA-Public Use
  Company Number: CA-ROCHE-1171797

PATIENT
  Age: 78 Year
  Sex: Female
  Weight: 105.33 kg

DRUGS (17)
  1. OMALIZUMAB [Suspect]
     Active Substance: OMALIZUMAB
     Indication: ASTHMA
     Route: 058
     Dates: start: 20070305
  2. OMALIZUMAB [Suspect]
     Active Substance: OMALIZUMAB
     Route: 058
     Dates: start: 20140227
  3. COZAAR [Concomitant]
     Active Substance: LOSARTAN POTASSIUM
     Indication: PRODUCT USED FOR UNKNOWN INDICATION
     Dosage: UNK
     Route: 065
  4. OMALIZUMAB [Suspect]
     Active Substance: OMALIZUMAB
     Route: 058
     Dates: start: 20121113
  5. OMALIZUMAB [Suspect]
     Active Substance: OMALIZUMAB
     Route: 058
     Dates: start: 20130321
  6. OMALIZUMAB [Suspect]
     Active Substance: OMALIZUMAB
     Route: 058
     Dates: start: 20070430
  7. OMALIZUMAB [Suspect]
     Active Substance: OMALIZUMAB
     Route: 058
     Dates: start: 20140313
  8. PREDNISONE. [Concomitant]
     Active Substance: PREDNISONE
  9. SPIRIVA [Concomitant]
     Active Substance: TIOTROPIUM BROMIDE MONOHYDRATE
  10. BRICANYL [Concomitant]
     Active Substance: TERBUTALINE SULFATE
  11. OMALIZUMAB [Suspect]
     Active Substance: OMALIZUMAB
     Route: 058
     Dates: start: 20140619
  12. OMALIZUMAB [Suspect]
     Active Substance: OMALIZUMAB
     Route: 058
  13. OMALIZUMAB [Suspect]
     Active Substance: OMALIZUMAB
     Route: 058
     Dates: start: 20140410
  14. OMALIZUMAB [Suspect]
     Active Substance: OMALIZUMAB
     Route: 058
     Dates: start: 20140424
  15. OMALIZUMAB [Suspect]
     Active Substance: OMALIZUMAB
     Route: 058
     Dates: start: 20070426
  16. ADVAIR HFA [Concomitant]
     Active Substance: FLUTICASONE PROPIONATE\SALMETEROL XINAFOATE
  17. OMALIZUMAB [Suspect]
     Active Substance: OMALIZUMAB
     Route: 058
     Dates: start: 20140826, end: 20141106

REACTIONS (31)
  - Aortic stenosis [Unknown]
  - Dyspnoea [Unknown]
  - Blood pressure diastolic decreased [Not Recovered/Not Resolved]
  - Musculoskeletal stiffness [Unknown]
  - Headache [Unknown]
  - Nightmare [Unknown]
  - Insomnia [Unknown]
  - Chest pain [Unknown]
  - Hypersensitivity [Unknown]
  - Haemorrhage [Not Recovered/Not Resolved]
  - Gait disturbance [Unknown]
  - Sinusitis [Unknown]
  - Epistaxis [Unknown]
  - Weight increased [Unknown]
  - Dyspnoea [Not Recovered/Not Resolved]
  - Heart rate decreased [Unknown]
  - Pneumonia [Unknown]
  - Hypertension [Not Recovered/Not Resolved]
  - Haematoma [Unknown]
  - Increased upper airway secretion [Unknown]
  - Nasal discharge discolouration [Unknown]
  - Dyspnoea exertional [Unknown]
  - Cough [Unknown]
  - Liver disorder [Unknown]
  - Death [Fatal]
  - Arrhythmia [Unknown]
  - Dyspnoea [Unknown]
  - Pulmonary oedema [Recovering/Resolving]
  - Fatigue [Not Recovered/Not Resolved]
  - Sinus congestion [Unknown]
  - Cholelithiasis [Unknown]

NARRATIVE: CASE EVENT DATE: 20120404
